FAERS Safety Report 5157836-1 (Version None)
Quarter: 2006Q4

REPORT INFORMATION
  Report Type: 
  Country: None (occurrence: None)
  Receive Date: 20061116
  Receipt Date: 20061031
  Transmission Date: 20070319
  Serious: Yes (Death)
  Sender: FDA-Public Use
  Company Number: L06-USA-04699-23

PATIENT
  Age: 52 Year

DRUGS (3)
  1. CITALOPRAM HYDROBROMIDE [Suspect]
  2. VALPROIC ACID [Suspect]
  3. IMIPRAMINE [Suspect]

REACTIONS (1)
  - ILL-DEFINED DISORDER [None]
